FAERS Safety Report 7155665-0 (Version None)
Quarter: 2010Q4

REPORT INFORMATION
  Report Type: 
  Country: None (occurrence: None)
  Receive Date: 20101214
  Receipt Date: 20091118
  Transmission Date: 20110411
  Serious: No
  Sender: FDA-Public Use
  Company Number: US-AMGEN-TCS375643

PATIENT

DRUGS (2)
  1. ENBREL [Suspect]
     Indication: PRODUCT USED FOR UNKNOWN INDICATION
     Dosage: 50 MG, QWK
     Route: 058
     Dates: start: 20091105
  2. METHOTREXATE [Concomitant]
     Dosage: 20 MG, QWK
     Route: 048
     Dates: start: 20090801

REACTIONS (1)
  - INJECTION SITE PAIN [None]
